FAERS Safety Report 7617745-2 (Version None)
Quarter: 2011Q3

REPORT INFORMATION
  Report Type: 
  Country: None (occurrence: None)
  Receive Date: 20110718
  Receipt Date: 20110707
  Transmission Date: 20111222
  Serious: Yes (Hospitalization, Other)
  Sender: FDA-Public Use
  Company Number: JP-JNJFOC-20110605481

PATIENT
  Age: 13 Year
  Sex: Female

DRUGS (5)
  1. CLOBAZAM [Suspect]
     Indication: EPILEPSY
     Route: 048
  2. TOPIRAMATE [Suspect]
     Route: 048
     Dates: start: 20090301, end: 20100701
  3. BETA BLOCKING AGENTS [Concomitant]
     Indication: TACHYCARDIA
     Route: 048
     Dates: end: 20110201
  4. TOPIRAMATE [Suspect]
     Indication: CONVULSION
     Route: 048
  5. DEPAKENE [Suspect]
     Indication: EPILEPSY
     Route: 048
     Dates: start: 20070701

REACTIONS (3)
  - ORTHOSTATIC HYPOTENSION [None]
  - HYPERTHYROIDISM [None]
  - DRUG INEFFECTIVE [None]
